FAERS Safety Report 19436438 (Version 1)
Quarter: 2021Q2

REPORT INFORMATION
  Report Type: Spontaneous
  Country: FR (occurrence: FR)
  Receive Date: 20210618
  Receipt Date: 20210618
  Transmission Date: 20210717
  Serious: Yes (Death)
  Sender: FDA-Public Use
  Company Number: FR-TEVA-2021-FR-1922786

PATIENT
  Age: 74 Year
  Sex: Female
  Weight: 58 kg

DRUGS (3)
  1. RIXATHON [Suspect]
     Active Substance: RITUXIMAB
     Indication: CENTRAL NERVOUS SYSTEM LYMPHOMA
     Dosage: J1 / CYCLE, 375MG/M2
     Route: 042
     Dates: start: 20210305, end: 20210402
  2. VINCRISTINE TEVA [Suspect]
     Active Substance: VINCRISTINE
     Indication: CENTRAL NERVOUS SYSTEM LYMPHOMA
     Dosage: J1 J15 / CYCLE, 2MG
     Route: 042
     Dates: start: 20210305, end: 20210422
  3. METHOTREXATE MYLAN [Suspect]
     Active Substance: METHOTREXATE SODIUM
     Indication: CENTRAL NERVOUS SYSTEM LYMPHOMA
     Dosage: J1 J15/CYCLE
     Route: 042
     Dates: start: 20210305, end: 20210422

REACTIONS (2)
  - Sepsis [Fatal]
  - COVID-19 [Fatal]

NARRATIVE: CASE EVENT DATE: 20210426
